FAERS Safety Report 25006285 (Version 1)
Quarter: 2025Q1

REPORT INFORMATION
  Report Type: Report from Study
  Country: US (occurrence: US)
  Receive Date: 20250224
  Receipt Date: 20250224
  Transmission Date: 20250409
  Serious: No
  Sender: SUNOVION
  Company Number: US-SMPA-2025SPA001230AA

PATIENT

DRUGS (2)
  1. ORGOVYX [Suspect]
     Active Substance: RELUGOLIX
     Indication: Device use issue
     Route: 048
  2. ORGOVYX [Suspect]
     Active Substance: RELUGOLIX
     Route: 048
     Dates: start: 202411

REACTIONS (8)
  - Muscle atrophy [Unknown]
  - Decreased appetite [Unknown]
  - Dairy intolerance [Unknown]
  - Protein intolerance [Unknown]
  - Urinary incontinence [Unknown]
  - Bone loss [Unknown]
  - Fatigue [Unknown]
  - Off label use [Unknown]
